FAERS Safety Report 23411190 (Version 1)
Quarter: 2024Q1

REPORT INFORMATION
  Report Type: Spontaneous
  Country: US (occurrence: None)
  Receive Date: 20240117
  Receipt Date: 20240117
  Transmission Date: 20240409
  Serious: Yes (Hospitalization)
  Sender: FDA-Public Use
  Company Number: None

PATIENT
  Sex: Female
  Weight: 139.3 kg

DRUGS (2)
  1. CARBOPLATIN [Suspect]
     Active Substance: CARBOPLATIN
     Dates: end: 20240110
  2. VINCRISTINE SULFATE [Suspect]
     Active Substance: VINCRISTINE SULFATE
     Dates: end: 20240110

REACTIONS (12)
  - Fatigue [None]
  - Chest discomfort [None]
  - Flushing [None]
  - Blood pressure systolic increased [None]
  - Heart rate increased [None]
  - Oxygen saturation decreased [None]
  - Cerebrovascular accident [None]
  - Neoplasm progression [None]
  - Hydrocephalus [None]
  - Hyperhidrosis [None]
  - Pulmonary thrombosis [None]
  - Pulmonary embolism [None]

NARRATIVE: CASE EVENT DATE: 20240110
